FAERS Safety Report 5960952-5 (Version None)
Quarter: 2008Q4

REPORT INFORMATION
  Report Type: 
  Country: None (occurrence: None)
  Receive Date: 20081119
  Receipt Date: 20081111
  Transmission Date: 20090506
  Serious: Yes (Hospitalization)
  Sender: FDA-Public Use
  Company Number: SPV1-2008-01889

PATIENT
  Age: 41 Year
  Sex: Female

DRUGS (1)
  1. LIALDA [Suspect]
     Indication: PROCTITIS ULCERATIVE
     Dosage: 2.4 G, 1X/DAY, QD, ORAL
     Route: 048
     Dates: start: 20080620, end: 20080827

REACTIONS (4)
  - GALLBLADDER DISORDER [None]
  - HEPATITIS ACUTE [None]
  - OFF LABEL USE [None]
  - URINARY TRACT INFECTION [None]
